FAERS Safety Report 6576119-6 (Version None)
Quarter: 2010Q1

REPORT INFORMATION
  Report Type: 
  Country: None (occurrence: None)
  Receive Date: 20100209
  Receipt Date: 20100204
  Transmission Date: 20100710
  Serious: Yes (Death)
  Sender: FDA-Public Use
  Company Number: PHHY2009JP55893

PATIENT
  Sex: Female

DRUGS (2)
  1. ZOLEDRONATE T29581+ [Suspect]
     Indication: METASTASES TO BONE
     Dosage: 4 MG, ONCE/SINGLE
     Dates: start: 20061221, end: 20061221
  2. DECADRON [Concomitant]
     Dosage: 2 MG, UNK
     Route: 042
     Dates: start: 20061221, end: 20070204

REACTIONS (1)
  - MALIGNANT NEOPLASM PROGRESSION [None]
